FAERS Safety Report 17393147 (Version 1)
Quarter: 2020Q1

REPORT INFORMATION
  Report Type: Spontaneous
  Country: US (occurrence: US)
  Receive Date: 20200207
  Receipt Date: 20200207
  Transmission Date: 20200409
  Serious: No
  Sender: FDA-Public Use
  Company Number: US-SUNOVION-2020SUN000307

PATIENT
  Sex: Female
  Weight: 60 kg

DRUGS (1)
  1. XOPENEX [Suspect]
     Active Substance: LEVALBUTEROL HYDROCHLORIDE
     Indication: ASTHMA
     Dosage: UNK
     Route: 055

REACTIONS (4)
  - Off label use [Unknown]
  - Menstrual disorder [Unknown]
  - Asthma [Unknown]
  - Exposure via breast milk [Unknown]
